FAERS Safety Report 8486368-8 (Version None)
Quarter: 2012Q3

REPORT INFORMATION
  Report Type: 
  Country: None (occurrence: None)
  Receive Date: 20120703
  Receipt Date: 20120622
  Transmission Date: 20120928
  Serious: Yes (Hospitalization)
  Sender: FDA-Public Use
  Company Number: JP-VIIV HEALTHCARE LIMITED-B0806577A

PATIENT
  Sex: Male

DRUGS (25)
  1. URSO 250 [Concomitant]
     Dosage: 300MG PER DAY
     Route: 048
  2. UNKNOWN MEDICATION [Concomitant]
     Dosage: 250ML PER DAY
     Route: 042
  3. VITAMEDIN [Concomitant]
     Route: 042
  4. MEROPENEM [Concomitant]
     Dosage: 300ML PER DAY
     Route: 042
  5. ISOTONIC SODIUM CHLORIDE SOLUTION [Concomitant]
     Route: 065
  6. CEFAZOLIN SODIUM [Concomitant]
     Dosage: 18MG PER DAY
     Route: 048
  7. PANTOL [Concomitant]
     Dosage: 5ML PER DAY
     Route: 042
  8. MARAVIROC [Suspect]
     Indication: HIV INFECTION
     Dosage: 300MG PER DAY
     Route: 048
     Dates: start: 20120528
  9. EPZICOM [Suspect]
     Indication: HIV INFECTION
     Dosage: 1IUAX PER DAY
     Route: 048
  10. KAYTWO N [Concomitant]
     Dosage: 4ML PER DAY
     Route: 042
  11. UNKNOWN MEDICATION [Concomitant]
     Dosage: 1000ML PER DAY
     Route: 042
  12. PROSTARMON.F [Concomitant]
     Dosage: 1ML PER DAY
     Route: 042
  13. AMIKACIN SULFATE [Concomitant]
     Dosage: 200MG PER DAY
     Route: 042
  14. ZITHROMAX [Concomitant]
     Route: 048
  15. CIPROFLOXACIN HYDROCHLORIDE [Concomitant]
     Dosage: 150ML PER DAY
     Route: 042
  16. HYDROCORTONE [Concomitant]
     Dosage: 2ML PER DAY
     Route: 042
  17. PREZISTA [Suspect]
     Indication: PRODUCT USED FOR UNKNOWN INDICATION
     Route: 065
     Dates: start: 20120528
  18. FLUCONAZOLE [Concomitant]
     Dosage: 200MG PER DAY
     Route: 048
  19. SULFAMETHOXAZOLE AND TRIMETHOPRIM [Concomitant]
     Dosage: 1IUAX PER DAY
     Route: 048
  20. ISENTRESS [Suspect]
     Indication: HIV INFECTION
     Dosage: 800MG PER DAY
     Route: 048
  21. NIZATIDINE [Concomitant]
     Dosage: 300MG PER DAY
     Route: 048
  22. ALENDRONATE SODIUM [Concomitant]
     Route: 048
  23. FOSCAVIR [Concomitant]
     Dosage: 6000MG PER DAY
     Route: 042
  24. TPN ELECTROLYTES IN PLASTIC CONTAINER [Concomitant]
     Dosage: 500ML PER DAY
     Route: 042
  25. NEUTROGIN [Concomitant]
     Dosage: 1ML PER DAY
     Route: 042

REACTIONS (4)
  - BONE MARROW FAILURE [None]
  - WHITE BLOOD CELL COUNT DECREASED [None]
  - NEUTROPHIL COUNT DECREASED [None]
  - PANCYTOPENIA [None]
